FAERS Safety Report 4357876-6 (Version None)
Quarter: 2004Q2

REPORT INFORMATION
  Report Type: 
  Country: None (occurrence: None)
  Receive Date: 20040514
  Receipt Date: 20040209
  Transmission Date: 20050107
  Serious: Yes (Other)
  Sender: FDA-Public Use
  Company Number: PHBS2004NL01963

PATIENT
  Age: 75 Year
  Sex: Female

DRUGS (8)
  1. CLOZAPINE [Suspect]
     Dosage: 100 MG/D
     Route: 065
  2. OXAZEPAM [Suspect]
     Dosage: 10 MG/D
     Route: 065
  3. OXAZEPAM [Suspect]
     Dosage: 10 MG, BID AS NECESSARY
     Route: 065
  4. NORFLOXACIN [Suspect]
     Dosage: 400 MG/D
     Route: 065
  5. CISORDINOL [Concomitant]
     Dosage: 2 MG, TID
     Route: 065
  6. PREDNISOLONE [Concomitant]
     Dosage: 10 MG/D
     Route: 065
  7. PREDNISOLONE [Concomitant]
     Dosage: 5MG/D
     Route: 065
  8. CARBAMAZEPINE [Concomitant]
     Dosage: 200 MG, TID
     Route: 065

REACTIONS (4)
  - BLOOD PRESSURE DECREASED [None]
  - COMA [None]
  - FEELING COLD [None]
  - MEDICATION ERROR [None]
